FAERS Safety Report 7125233-5 (Version None)
Quarter: 2010Q4

REPORT INFORMATION
  Report Type: 
  Country: None (occurrence: None)
  Receive Date: 20101129
  Receipt Date: 20101122
  Transmission Date: 20110411
  Serious: Yes (Death, Hospitalization, Other)
  Sender: FDA-Public Use
  Company Number: PHFR2010GB05549

PATIENT
  Age: 74 Year
  Sex: Female
  Weight: 60 kg

DRUGS (4)
  1. DICLOFENAC SODIUM [Suspect]
     Indication: SCIATICA
     Dosage: 50 MG, TID
     Route: 048
     Dates: start: 20100402, end: 20100414
  2. BENDROFLUMETHIAZIDE [Concomitant]
     Indication: HYPERTENSION
     Dosage: 2.5 MG, QD
  3. ORAMORPH SR [Concomitant]
     Indication: PAIN
  4. CO-DYDRAMOL [Concomitant]
     Indication: PAIN

REACTIONS (8)
  - BACK PAIN [None]
  - DRUG INEFFECTIVE [None]
  - GASTRIC ULCER PERFORATION [None]
  - MULTI-ORGAN FAILURE [None]
  - MYOCARDIAL ISCHAEMIA [None]
  - NEUROPATHY PERIPHERAL [None]
  - PERITONITIS [None]
  - SYNCOPE [None]
